FAERS Safety Report 8038845-1 (Version None)
Quarter: 2012Q1

REPORT INFORMATION
  Report Type: 
  Country: None (occurrence: None)
  Receive Date: 20120111
  Receipt Date: 20111207
  Transmission Date: 20120608
  Serious: No
  Sender: FDA-Public Use
  Company Number: US-AMGEN-USASP2011065182

PATIENT
  Age: 62 Year
  Sex: Female

DRUGS (1)
  1. ENBREL [Suspect]
     Indication: RHEUMATOID ARTHRITIS
     Dosage: 50 MG, QWK
     Dates: start: 20101101, end: 20111001

REACTIONS (6)
  - CONTUSION [None]
  - FALL [None]
  - PAIN IN EXTREMITY [None]
  - ARTHRALGIA [None]
  - NASOPHARYNGITIS [None]
  - INJECTION SITE PAIN [None]
